FAERS Safety Report 13467505 (Version 2)
Quarter: 2017Q2

REPORT INFORMATION
  Report Type: Spontaneous
  Country: US (occurrence: US)
  Receive Date: 20170421
  Receipt Date: 20170426
  Transmission Date: 20170830
  Serious: Yes (Other)
  Sender: FDA-Public Use
  Company Number: US-PFIZER INC-2017171169

PATIENT
  Age: 66 Year
  Sex: Female
  Weight: 118 kg

DRUGS (5)
  1. HYDROCODONE/ACETAMINOPHEN [Concomitant]
     Active Substance: ACETAMINOPHEN\HYDROCODONE
     Indication: SCIATICA
     Dosage: UNK UNK, 3X/DAY [HYDROCODONE BITARTRATE: 10 MG]/[PARACETAMOL: 325 MG]
     Route: 048
     Dates: start: 201609
  2. IBUPROFEN. [Concomitant]
     Active Substance: IBUPROFEN
     Dosage: 20 MG, UNK
  3. AMLODIPINE [Concomitant]
     Active Substance: AMLODIPINE BESYLATE
     Indication: BLOOD PRESSURE DIASTOLIC INCREASED
     Dosage: 10 MG, 1X/DAY
     Route: 048
  4. DULOXETINE. [Concomitant]
     Active Substance: DULOXETINE
     Indication: SCIATICA
     Dosage: 60 MG, 1X/DAY
     Route: 048
  5. CELEBREX [Suspect]
     Active Substance: CELECOXIB
     Indication: ARTHRITIS
     Dosage: 200 MG, 1X/DAY
     Route: 048
     Dates: start: 20170407, end: 20170409

REACTIONS (11)
  - Malaise [Recovering/Resolving]
  - Abdominal distension [Unknown]
  - Abasia [Unknown]
  - Pain [Recovering/Resolving]
  - Aphasia [Unknown]
  - Constipation [Recovering/Resolving]
  - Drug use disorder [Unknown]
  - Stupor [Unknown]
  - Abdominal discomfort [Recovering/Resolving]
  - Dysuria [Recovering/Resolving]
  - Decreased appetite [Unknown]

NARRATIVE: CASE EVENT DATE: 20170408
